FAERS Safety Report 5813561-2 (Version None)
Quarter: 2008Q3

REPORT INFORMATION
  Report Type: 
  Country: None (occurrence: None)
  Receive Date: 20080716
  Receipt Date: 20080716
  Transmission Date: 20090109
  Serious: Yes (Hospitalization)
  Sender: FDA-Public Use
  Company Number: None

PATIENT
  Age: 59 Year
  Sex: Female

DRUGS (1)
  1. DARBEPOETIN ALFA 300 MCG EVERY 3 WEEKS [Suspect]
     Dosage: SEE ABOVE

REACTIONS (1)
  - DEEP VEIN THROMBOSIS [None]
